FAERS Safety Report 9099063 (Version 1)
Quarter: 2013Q1

REPORT INFORMATION
  Report Type: Report from Study
  Country: US (occurrence: US)
  Receive Date: 20130215
  Receipt Date: 20130215
  Transmission Date: 20140127
  Serious: Yes (Hospitalization, Other)
  Sender: FDA-Public Use
  Company Number: US-US-EMD SERONO, INC.-7187698

PATIENT
  Sex: Male
  Weight: 17 kg

DRUGS (4)
  1. SAIZEN [(SOMATROPIN (RDNA ORIGIN) FOR INJECTION)] [Suspect]
     Indication: HYPOPITUITARISM
     Route: 058
     Dates: start: 20100828
  2. SAIZEN [(SOMATROPIN (RDNA ORIGIN) FOR INJECTION)] [Suspect]
     Route: 058
  3. HYDROCORTISONE [Concomitant]
     Dosage: 7.5 MG IN AM, 2.5 MG AT NOON AND 5 MG IN PM.
     Dates: start: 200712
  4. LEVOTHYROXINE [Concomitant]
     Indication: PRODUCT USED FOR UNKNOWN INDICATION
     Route: 048

REACTIONS (5)
  - Hypoglycaemia [Unknown]
  - Respiratory syncytial virus infection [Unknown]
  - Strabismus [Unknown]
  - Upper respiratory tract infection [Unknown]
  - Constipation [Unknown]
